FAERS Safety Report 19207264 (Version 4)
Quarter: 2021Q4

REPORT INFORMATION
  Report Type: Spontaneous
  Country: US (occurrence: US)
  Receive Date: 20210503
  Receipt Date: 20211201
  Transmission Date: 20220303
  Serious: Yes (Hospitalization)
  Sender: FDA-Public Use
  Company Number: US-PFIZER INC-2021262452

PATIENT
  Age: 50 Year
  Sex: Female
  Weight: 108.84 kg

DRUGS (11)
  1. IBRANCE [Suspect]
     Active Substance: PALBOCICLIB
     Indication: Breast cancer female
     Dosage: 125 MG, CYCLIC (ONCE DAILY FOR 3 WEEKS ON, 1 WEEK OFF EVERY 28 DAYS)
     Route: 048
     Dates: start: 20210217
  2. IBRANCE [Suspect]
     Active Substance: PALBOCICLIB
     Dosage: 100 MG, CYCLIC (DAILY, 21 DAYS ON, 7 DAYS OFF)
     Route: 048
     Dates: start: 20210202, end: 202110
  3. DOXYCYCLINE [Concomitant]
     Active Substance: DOXYCYCLINE
  4. FENTANYL [Concomitant]
     Active Substance: FENTANYL
     Dosage: 50 MG
  5. FENTANYL [Concomitant]
     Active Substance: FENTANYL
     Dosage: 25 MG
  6. COVID-19 VACCINE NOS [Concomitant]
     Active Substance: COVID-19 VACCINE NOS
     Dosage: UNK
  7. GABAPENTIN [Concomitant]
     Active Substance: GABAPENTIN
     Dosage: UNK (100% POWDER)
  8. ANASTROZOLE [Concomitant]
     Active Substance: ANASTROZOLE
     Dosage: UNK (100% POWDER)
  9. CLONAZEPAM [Concomitant]
     Active Substance: CLONAZEPAM
     Dosage: 0.125 MG
  10. CYCLOBENZAPRINE HYDROCHLORIDE [Concomitant]
     Active Substance: CYCLOBENZAPRINE HYDROCHLORIDE
     Dosage: UNK (100% POWDER)
  11. TRAMADOL HCL [Concomitant]
     Active Substance: TRAMADOL HYDROCHLORIDE
     Dosage: UNK (100% POWDER)

REACTIONS (11)
  - Staphylococcal infection [Unknown]
  - Nausea [Recovering/Resolving]
  - Fatigue [Not Recovered/Not Resolved]
  - White blood cell count decreased [Recovered/Resolved]
  - Oral discomfort [Unknown]
  - Crying [Unknown]
  - Anxiety [Unknown]
  - Diarrhoea [Unknown]
  - Feeling abnormal [Unknown]
  - Neoplasm progression [Unknown]
  - Skin abrasion [Unknown]

NARRATIVE: CASE EVENT DATE: 20211001
